FAERS Safety Report 4533712-X (Version None)
Quarter: 2004Q4

REPORT INFORMATION
  Report Type: 
  Country: None (occurrence: None)
  Receive Date: 20041221
  Receipt Date: 20041028
  Transmission Date: 20050328
  Serious: Yes (Disabling)
  Sender: FDA-Public Use
  Company Number: JP-GLAXOSMITHKLINE-B0350187A

PATIENT
  Age: 82 Year
  Sex: Female

DRUGS (10)
  1. PAXIL [Suspect]
     Indication: DEPRESSION
     Dosage: 20MG PER DAY
     Route: 048
     Dates: start: 20040823, end: 20040831
  2. PREDONINE [Concomitant]
     Indication: RHEUMATOID ARTHRITIS
     Dosage: 15MG PER DAY
     Route: 048
  3. VOLTAREN [Concomitant]
     Indication: RHEUMATOID ARTHRITIS
     Dosage: 25MG PER DAY
     Route: 054
  4. ZANTAC [Concomitant]
     Indication: GASTROINTESTINAL ULCER
     Dosage: 300MG PER DAY
     Route: 048
  5. SIGMART [Concomitant]
     Dosage: 10MG PER DAY
     Route: 048
  6. LASIX [Concomitant]
     Indication: CARDIAC FAILURE CONGESTIVE
     Dosage: 20MG PER DAY
     Route: 048
  7. LENDORMIN [Concomitant]
     Indication: INSOMNIA
     Dosage: .25MG PER DAY
     Route: 048
     Dates: end: 20040822
  8. SERENACE [Concomitant]
     Indication: INSOMNIA
     Dosage: .375MG PER DAY
     Route: 048
     Dates: start: 20040721, end: 20040902
  9. ROHYPNOL [Concomitant]
     Indication: INSOMNIA
     Route: 042
     Dates: start: 20040826, end: 20040923
  10. PREDNISOLONE [Concomitant]
     Route: 042

REACTIONS (5)
  - DEMENTIA [None]
  - DEPRESSED LEVEL OF CONSCIOUSNESS [None]
  - HYPONATRAEMIA [None]
  - INAPPROPRIATE ANTIDIURETIC HORMONE SECRETION [None]
  - URINE OUTPUT DECREASED [None]
